FAERS Safety Report 10795955 (Version 2)
Quarter: 2015Q1

REPORT INFORMATION
  Report Type: Other
  Country: GB (occurrence: GB)
  Receive Date: 20150216
  Receipt Date: 20150224
  Transmission Date: 20150721
  Serious: Yes (Other)
  Sender: FDA-Public Use
  Company Number: GB-ASTELLAS-2015US004166

PATIENT
  Age: 65 Year
  Sex: Female

DRUGS (2)
  1. OMEPRAZOLE. [Concomitant]
     Active Substance: OMEPRAZOLE
     Indication: PRODUCT USED FOR UNKNOWN INDICATION
     Route: 065
  2. PROTOPIC [Suspect]
     Active Substance: TACROLIMUS
     Indication: ERYTHEMA ANNULARE
     Dosage: THIN LAYER TWICE DAILY
     Route: 061
     Dates: start: 20141219, end: 20150110

REACTIONS (5)
  - Erythema [Not Recovered/Not Resolved]
  - Skin infection [Not Recovered/Not Resolved]
  - Product use issue [Unknown]
  - Burning sensation [Not Recovered/Not Resolved]
  - Skin swelling [Not Recovered/Not Resolved]
